FAERS Safety Report 4352426-2 (Version None)
Quarter: 2004Q2

REPORT INFORMATION
  Report Type: 
  Country: None (occurrence: None)
  Receive Date: 20040428
  Receipt Date: 20040415
  Transmission Date: 20050107
  Serious: No
  Sender: FDA-Public Use
  Company Number: 04H-062-0257672-00

PATIENT
  Age: 72 Year
  Sex: Male

DRUGS (5)
  1. EPINEPHRINE [Suspect]
     Indication: DYSURIA
     Dosage: 2 ML, ONCE, INTRAVESICAL
     Route: 019
  2. LIDOCAINE HCL 4% INJECTION, USP (LIDOCAINE HCL INJECTION, USP) (LIDOCA [Suspect]
     Indication: DYSURIA
     Dosage: 100 ML, ONCE, INTRAVESICAL
     Route: 043
  3. DEXAMETHASONE [Suspect]
     Indication: DYSURIA
     Dosage: 40 MG/10ML, ONCE, INTRAVESICAL
     Route: 043
  4. OXYBUTYNIN [Concomitant]
  5. DESMOPRESSIN [Concomitant]

REACTIONS (3)
  - ASTHENIA [None]
  - DYSARTHRIA [None]
  - TRANSIENT ISCHAEMIC ATTACK [None]
